FAERS Safety Report 4896608-X (Version None)
Quarter: 2006Q1

REPORT INFORMATION
  Report Type: 
  Country: None (occurrence: None)
  Receive Date: 20060131
  Receipt Date: 20051007
  Transmission Date: 20060701
  Serious: Yes (Life-Threatening, Hospitalization)
  Sender: FDA-Public Use
  Company Number: DE-AMGEN-UK153590

PATIENT
  Sex: Male
  Weight: 80.5 kg

DRUGS (9)
  1. MIMPARA [Suspect]
     Indication: HYPERPARATHYROIDISM SECONDARY
     Route: 048
  2. DILATREND [Concomitant]
     Route: 065
  3. ENALAPRIL [Concomitant]
     Route: 065
  4. ANTI-PHOSPHAT [Concomitant]
     Route: 065
  5. CALCITRIOL [Concomitant]
     Route: 065
  6. L-THYROXIN [Concomitant]
     Route: 065
  7. SIMVASTATIN [Concomitant]
     Route: 065
  8. NEORECORMON [Concomitant]
     Route: 065
  9. FERRLECIT FOR INJECTION [Concomitant]
     Route: 042

REACTIONS (7)
  - CONVULSION [None]
  - ELECTROLYTE IMBALANCE [None]
  - FALL [None]
  - LOSS OF CONSCIOUSNESS [None]
  - MUSCLE SPASMS [None]
  - MUSCLE TWITCHING [None]
  - POST PROCEDURAL COMPLICATION [None]
